FAERS Safety Report 4717681-5 (Version None)
Quarter: 2005Q3

REPORT INFORMATION
  Report Type: 
  Country: None (occurrence: None)
  Receive Date: 20050715
  Receipt Date: 20050629
  Transmission Date: 20060218
  Serious: Yes (Other)
  Sender: FDA-Public Use
  Company Number: 2005001214

PATIENT
  Age: 75 Year
  Sex: Female

DRUGS (10)
  1. TARCEVA [Suspect]
     Indication: LUNG NEOPLASM MALIGNANT
     Dosage: 100 MG (QD) ORAL
     Route: 048
     Dates: start: 20050516, end: 20050606
  2. PREMARIN [Concomitant]
  3. PROVERA [Concomitant]
  4. PRAVACHOL (PRAVASTIN SODIUM) [Concomitant]
  5. VITAMIN E [Concomitant]
  6. PLAVIX [Concomitant]
  7. ACETYLSALICYLIC ACID SRT [Concomitant]
  8. ZETIA [Concomitant]
  9. MEDROL [Concomitant]
  10. EYEDROPS [Concomitant]

REACTIONS (5)
  - ARTHRALGIA [None]
  - NAUSEA [None]
  - SERUM SICKNESS [None]
  - UVEITIS [None]
  - VOMITING [None]
